FAERS Safety Report 19805315 (Version 1)
Quarter: 2021Q3

REPORT INFORMATION
  Report Type: Report from Study
  Country: JP (occurrence: JP)
  Receive Date: 20210909
  Receipt Date: 20210909
  Transmission Date: 20211014
  Serious: Yes (Life-Threatening, Hospitalization)
  Sender: FDA-Public Use
  Company Number: JP-AMGEN-JPNSP2021137202

PATIENT
  Age: 69 Year
  Sex: Female
  Weight: 66 kg

DRUGS (13)
  1. EVOLOCUMAB [Suspect]
     Active Substance: EVOLOCUMAB
     Indication: TYPE IIA HYPERLIPIDAEMIA
     Dosage: 140 MILLIGRAM, Q4WK
     Route: 058
     Dates: start: 20190830
  2. LIVALO [Concomitant]
     Active Substance: PITAVASTATIN CALCIUM
     Indication: TYPE IIA HYPERLIPIDAEMIA
     Dosage: 2 MILLIGRAM, QD
     Dates: start: 20190726, end: 20190728
  3. TAKECAB [Concomitant]
     Active Substance: VONOPRAZAN FUMARATE
     Dosage: 10 MILLIGRAM, QD
     Route: 048
     Dates: start: 2020
  4. NEXIUM [Concomitant]
     Active Substance: ESOMEPRAZOLE MAGNESIUM
     Dosage: 20 MILLIGRAM, QD
     Route: 048
     Dates: end: 2020
  5. WARFARIN [Concomitant]
     Active Substance: WARFARIN
     Dosage: 2.5 MILLIGRAM, QD
     Route: 048
  6. AZILVA [Concomitant]
     Active Substance: AZILSARTAN KAMEDOXOMIL
     Dosage: 10 MILLIGRAM, QD
     Route: 048
  7. EVOLOCUMAB [Suspect]
     Active Substance: EVOLOCUMAB
     Dosage: 140 MILLIGRAM, Q2WK
     Route: 058
     Dates: start: 20190927
  8. CRESTOR [Concomitant]
     Active Substance: ROSUVASTATIN CALCIUM
     Indication: TYPE IIA HYPERLIPIDAEMIA
     Dosage: 5 MILLIGRAM, QD
     Dates: end: 20190712
  9. EVOLOCUMAB [Suspect]
     Active Substance: EVOLOCUMAB
     Dosage: 140 MILLIGRAM, Q2WK
     Route: 058
     Dates: start: 20210319
  10. THYRADIN S [Concomitant]
     Active Substance: LEVOTHYROXINE SODIUM
     Dosage: 112.5 MICROGRAM, QD
     Route: 048
  11. EVOLOCUMAB [Suspect]
     Active Substance: EVOLOCUMAB
     Dosage: 140 MILLIGRAM, Q2WK
     Route: 058
     Dates: start: 20191206, end: 20201106
  12. PARAMIDIN [Concomitant]
     Active Substance: BUCOLOME
     Dosage: 300 MILLIGRAM, QD
     Route: 048
     Dates: end: 2020
  13. ADALAT CC [Concomitant]
     Active Substance: NIFEDIPINE
     Dosage: 10 MILLIGRAM, QD
     Route: 048

REACTIONS (4)
  - Aortic dissection [Not Recovered/Not Resolved]
  - Pulmonary alveolar haemorrhage [Recovered/Resolved]
  - Pulmonary alveolar haemorrhage [Recovered/Resolved]
  - Vasculitis [Not Recovered/Not Resolved]

NARRATIVE: CASE EVENT DATE: 20201117
